FAERS Safety Report 16054658 (Version 1)
Quarter: 2019Q1

REPORT INFORMATION
  Report Type: Spontaneous
  Country: US (occurrence: US)
  Receive Date: 20190309
  Receipt Date: 20190309
  Transmission Date: 20190418
  Serious: No
  Sender: FDA-Public Use
  Company Number: US-JNJFOC-20190226574

PATIENT
  Sex: Female

DRUGS (2)
  1. ROGAINE [Suspect]
     Active Substance: MINOXIDIL
     Indication: ACCIDENTAL EXPOSURE TO PRODUCT
     Route: 048
  2. ROGAINE [Suspect]
     Active Substance: MINOXIDIL
     Route: 048

REACTIONS (2)
  - Accidental exposure to product [Unknown]
  - Glossodynia [Unknown]
